FAERS Safety Report 10290885 (Version 1)
Quarter: 2014Q3

REPORT INFORMATION
  Report Type: Spontaneous
  Country: US (occurrence: None)
  Receive Date: 20140708
  Receipt Date: 20140708
  Transmission Date: 20150326
  Serious: Yes (Other)
  Sender: FDA-Public Use
  Company Number: None

PATIENT
  Age: 66 Year
  Sex: Male
  Weight: 82.1 kg

DRUGS (5)
  1. CELEXA [Concomitant]
     Active Substance: CITALOPRAM HYDROBROMIDE
  2. XARELTO [Suspect]
     Active Substance: RIVAROXABAN
     Indication: DISEASE RECURRENCE
     Dosage: 1 TAB, QD, RECTAL
     Route: 054
     Dates: start: 20140522, end: 20140703
  3. TRAZODONE [Concomitant]
     Active Substance: TRAZODONE HYDROCHLORIDE
  4. NAPROXEN. [Concomitant]
     Active Substance: NAPROXEN
  5. XARELTO [Suspect]
     Active Substance: RIVAROXABAN
     Indication: DEEP VEIN THROMBOSIS
     Dosage: 1 TAB, QD, RECTAL
     Route: 054
     Dates: start: 20140522, end: 20140703

REACTIONS (2)
  - Haematochezia [None]
  - Epistaxis [None]

NARRATIVE: CASE EVENT DATE: 20140703
